FAERS Safety Report 22631022 (Version 2)
Quarter: 2023Q4

REPORT INFORMATION
  Report Type: Spontaneous
  Country: US (occurrence: US)
  Receive Date: 20230622
  Receipt Date: 20231205
  Transmission Date: 20240110
  Serious: Yes (Other)
  Sender: FDA-Public Use
  Company Number: US-CELLTRION INC.-2023US012505

PATIENT

DRUGS (12)
  1. TRUXIMA [Suspect]
     Active Substance: RITUXIMAB-ABBS
     Indication: Granulomatosis with polyangiitis
     Dosage: 1000 MG 4 TIMES A YEAR
  2. ADVAIR HFA [Concomitant]
     Active Substance: FLUTICASONE PROPIONATE\SALMETEROL XINAFOATE
  3. ATORVASTATIN [Concomitant]
     Active Substance: ATORVASTATIN
  4. BUDESONIDE [Concomitant]
     Active Substance: BUDESONIDE
  5. BUPROPION [Concomitant]
     Active Substance: BUPROPION
  6. INSULIN GLARGINE [Concomitant]
     Active Substance: INSULIN GLARGINE
  7. JARDIANCE [Concomitant]
     Active Substance: EMPAGLIFLOZIN
  8. METFORMIN [Concomitant]
     Active Substance: METFORMIN HYDROCHLORIDE
  9. METOPROLOL TARTRATE [Concomitant]
     Active Substance: METOPROLOL TARTRATE
  10. MUPIROCIN [Concomitant]
     Active Substance: MUPIROCIN
  11. SERTRALINE [Concomitant]
     Active Substance: SERTRALINE HYDROCHLORIDE
  12. ZETIA [Concomitant]
     Active Substance: EZETIMIBE

REACTIONS (21)
  - COVID-19 [Unknown]
  - Headache [Unknown]
  - Myocardial infarction [Unknown]
  - Weight decreased [Unknown]
  - Bloody discharge [Unknown]
  - Eye pain [Unknown]
  - Hypoacusis [Unknown]
  - Tinnitus [Unknown]
  - Nose deformity [Unknown]
  - Chest pain [Unknown]
  - Abdominal pain [Unknown]
  - Hypoaesthesia [Unknown]
  - Dyspnoea [Unknown]
  - Arthralgia [Unknown]
  - Cough [Unknown]
  - Cough [Not Recovered/Not Resolved]
  - Diarrhoea [Unknown]
  - Epistaxis [Unknown]
  - Fatigue [Unknown]
  - Nasal congestion [Unknown]
  - Intentional product use issue [Unknown]

NARRATIVE: CASE EVENT DATE: 20150101
